FAERS Safety Report 25919919 (Version 1)
Quarter: 2025Q4

REPORT INFORMATION
  Report Type: Spontaneous
  Country: US (occurrence: None)
  Receive Date: 20251010
  Receipt Date: 20251010
  Transmission Date: 20260118
  Serious: Yes (Hospitalization)
  Sender: FDA-CTU
  Company Number: None

PATIENT
  Sex: Male

DRUGS (2)
  1. DALFAMPRIDINE [Suspect]
     Active Substance: DALFAMPRIDINE
     Indication: Multiple sclerosis
     Dosage: 10 MG TWICE A DY ORAL?
     Route: 048
     Dates: start: 20230501
  2. MAYZENT [Concomitant]
     Active Substance: SIPONIMOD

REACTIONS (1)
  - Cerebrovascular accident [None]
